FAERS Safety Report 23249170 (Version 1)
Quarter: 2023Q4

REPORT INFORMATION
  Report Type: Spontaneous
  Country: US (occurrence: US)
  Receive Date: 20231201
  Receipt Date: 20231201
  Transmission Date: 20240109
  Serious: No
  Sender: FDA-Public Use
  Company Number: US-BIOVITRUM-2023-US-018694

PATIENT
  Age: 1 Month
  Sex: Male

DRUGS (1)
  1. SYNAGIS [Suspect]
     Active Substance: PALIVIZUMAB
     Indication: Premature baby
     Dosage: EVERY 28 DAYS TO 30 DAYS
     Route: 030
     Dates: start: 20231020, end: 202311

REACTIONS (4)
  - Nasal congestion [Unknown]
  - Rhinorrhoea [Unknown]
  - Increased viscosity of upper respiratory secretion [Unknown]
  - Dyspnoea [Unknown]
